FAERS Safety Report 5786418-3 (Version None)
Quarter: 2008Q2

REPORT INFORMATION
  Report Type: 
  Country: None (occurrence: None)
  Receive Date: 20080624
  Receipt Date: 20070723
  Transmission Date: 20081010
  Serious: No
  Sender: FDA-Public Use
  Company Number: US-ASTRAZENECA-2007UW17811

PATIENT
  Age: 77 Year
  Sex: Male
  Weight: 74.8 kg

DRUGS (12)
  1. PULMICORT FLEXHALER [Suspect]
     Indication: DYSPNOEA
     Dosage: 2 PUFFS BID
     Route: 055
     Dates: start: 20070717, end: 20070719
  2. PULMICORT FLEXHALER [Suspect]
     Dosage: 2 PUFFS BID
     Route: 055
     Dates: start: 20070720, end: 20070722
  3. XOPENEX [Concomitant]
  4. SPIRIVA [Concomitant]
  5. ALBUTEROL [Concomitant]
  6. DILTIA XT [Concomitant]
  7. TRIAMTERENE AND HYDROCHLOROTHIAZIDE [Concomitant]
  8. LISINOPRIL [Concomitant]
  9. ALPRAZOLAM [Concomitant]
  10. TRAZODONE HCL [Concomitant]
  11. ASPIRIN [Concomitant]
  12. VITAMIN CAP [Concomitant]

REACTIONS (3)
  - COUGH [None]
  - PHARYNGOLARYNGEAL PAIN [None]
  - THROAT IRRITATION [None]
